FAERS Safety Report 8289924-5 (Version None)
Quarter: 2012Q2

REPORT INFORMATION
  Report Type: 
  Country: None (occurrence: None)
  Receive Date: 20120417
  Receipt Date: 20120409
  Transmission Date: 20120825
  Serious: Yes (Death)
  Sender: FDA-Public Use
  Company Number: CO-ROCHE-1059432

PATIENT
  Sex: Male

DRUGS (3)
  1. LUCENTIS [Suspect]
     Indication: MACULAR OEDEMA
     Dates: start: 20110317
  2. AVASTIN [Concomitant]
  3. RANITIDINE [Concomitant]

REACTIONS (1)
  - MYOCARDIAL INFARCTION [None]
